FAERS Safety Report 16873092 (Version 2)
Quarter: 2019Q4

REPORT INFORMATION
  Report Type: Spontaneous
  Country: US (occurrence: US)
  Receive Date: 20191001
  Receipt Date: 20191016
  Transmission Date: 20200122
  Serious: Yes (Hospitalization, Disabling, Other)
  Sender: FDA-Public Use
  Company Number: US-009507513-1910USA000238

PATIENT
  Sex: Female
  Weight: 98.41 kg

DRUGS (5)
  1. VITAMINS (UNSPECIFIED) [Concomitant]
     Active Substance: VITAMINS
     Indication: ROUTINE HEALTH MAINTENANCE
     Dosage: UNK
     Dates: start: 1977
  2. JANUVIA [Suspect]
     Active Substance: SITAGLIPTIN PHOSPHATE
     Dosage: 100 MG, ONCE DAILY
     Route: 048
     Dates: start: 20070727, end: 20111102
  3. VICTOZA [Suspect]
     Active Substance: LIRAGLUTIDE
     Dosage: DOSE: 1.2 MG INCREASING TO 1.8 MG, ONCE DAILY
     Dates: start: 20100301, end: 20160603
  4. ASPIRIN. [Concomitant]
     Active Substance: ASPIRIN
     Indication: THALASSAEMIA
     Dosage: UNK
     Dates: start: 2003
  5. JANUMET [Suspect]
     Active Substance: METFORMIN HYDROCHLORIDE\SITAGLIPTIN PHOSPHATE
     Dosage: DOSE: 50-1000 MG, TWICE DAILY
     Route: 048
     Dates: start: 20111102, end: 20120307

REACTIONS (12)
  - Obesity [Unknown]
  - Leukocytosis [Recovering/Resolving]
  - Anxiety [Unknown]
  - Pancreatic carcinoma metastatic [Recovered/Resolved]
  - Wound infection [Not Recovered/Not Resolved]
  - Ovarian adenoma [Unknown]
  - Endometrial atrophy [Unknown]
  - Weight increased [Unknown]
  - Thyroid disorder [Not Recovered/Not Resolved]
  - Hepatic lesion [Unknown]
  - Pancreatic neoplasm [Unknown]
  - Pancreatitis chronic [Unknown]

NARRATIVE: CASE EVENT DATE: 2016
